FAERS Safety Report 15332766 (Version 1)
Quarter: 2018Q3

REPORT INFORMATION
  Report Type: Spontaneous
  Country: CN (occurrence: CN)
  Receive Date: 20180830
  Receipt Date: 20180830
  Transmission Date: 20181010
  Serious: Yes (Hospitalization)
  Sender: FDA-Public Use
  Company Number: CN-ASTRAZENECA-2018SF08654

PATIENT
  Age: 58 Year
  Sex: Female

DRUGS (5)
  1. VILDAGLIPTIN [Concomitant]
     Active Substance: VILDAGLIPTIN
     Indication: BLOOD GLUCOSE
  2. DAPAGLIFLOZIN. [Suspect]
     Active Substance: DAPAGLIFLOZIN
     Indication: BLOOD GLUCOSE
     Route: 048
  3. GLIPIZIDE. [Concomitant]
     Active Substance: GLIPIZIDE
     Indication: BLOOD GLUCOSE
  4. METFORMIN [Concomitant]
     Active Substance: METFORMIN HYDROCHLORIDE
     Indication: BLOOD GLUCOSE
  5. INSULIN GLARGINE [Concomitant]
     Active Substance: INSULIN GLARGINE
     Indication: BLOOD GLUCOSE
     Dosage: 20 U EVERY NIGHT
     Route: 058

REACTIONS (5)
  - Glucose urine present [Recovering/Resolving]
  - Feeding disorder [Recovering/Resolving]
  - Urine ketone body present [Recovering/Resolving]
  - Vomiting [Recovering/Resolving]
  - Nausea [Recovering/Resolving]
